FAERS Safety Report 13329211 (Version 1)
Quarter: 2017Q1

REPORT INFORMATION
  Report Type: Spontaneous
  Country: US (occurrence: US)
  Receive Date: 20170313
  Receipt Date: 20170313
  Transmission Date: 20170428
  Serious: Yes (Hospitalization)
  Sender: FDA-Public Use
  Company Number: None

PATIENT
  Age: 15 Year
  Sex: Male
  Weight: 57.61 kg

DRUGS (1)
  1. TRIMETHOPRIM-SULFAMETHOXAZOLE 800-160MG [Suspect]
     Active Substance: SULFAMETHOXAZOLE\TRIMETHOPRIM
     Indication: ACNE
     Route: 048
     Dates: start: 20170110, end: 20170212

REACTIONS (4)
  - Renal disorder [None]
  - Lung disorder [None]
  - Drug reaction with eosinophilia and systemic symptoms [None]
  - Liver disorder [None]

NARRATIVE: CASE EVENT DATE: 20170212
